FAERS Safety Report 4620084-5 (Version None)
Quarter: 2005Q1

REPORT INFORMATION
  Report Type: 
  Country: None (occurrence: None)
  Receive Date: 20050324
  Receipt Date: 20050311
  Transmission Date: 20050727
  Serious: Yes (Hospitalization, Other)
  Sender: FDA-Public Use
  Company Number: 2005040174

PATIENT
  Age: 47 Year
  Sex: Male
  Weight: 108 kg

DRUGS (8)
  1. HALCION [Suspect]
     Indication: DISSOCIATIVE AMNESIA
     Dosage: 0.25 MG (0.25 MG,) ORAL
     Route: 048
     Dates: start: 20021001
  2. LORAZEPAM [Suspect]
     Indication: DISSOCIATIVE AMNESIA
     Dosage: 1 MG (1 MG, QD), ORAL
     Route: 048
     Dates: start: 20021001
  3. FLUNITRAZEPAM (FLUNITRAZEPAM) [Concomitant]
     Indication: DISSOCIATIVE AMNESIA
     Dosage: 2 MG (2 MG, QD), ORAL
     Route: 048
     Dates: start: 20021001
  4. PHENOBARBITAL TAB [Suspect]
     Indication: ILL-DEFINED DISORDER
     Dosage: ORAL
     Route: 048
  5. TIZANIDINE HCL [Suspect]
     Indication: DISSOCIATIVE AMNESIA
     Dosage: ORAL
     Route: 048
  6. ZOPICLONE (ZOPICLONE) [Suspect]
     Indication: DISSOCIATIVE AMNESIA
     Dosage: ORAL
     Route: 048
  7. VEGETAMIN(CHLORPROMAZINE HYDROCHLORIDE, PHENOBARBITAL, PROMETHAZINE HY [Suspect]
     Indication: DISSOCIATIVE AMNESIA
     Dosage: ORAL
     Route: 048
  8. ALL OTHER THERAPEUTIC PRODUCTS (ALL OTHER THERAPEUTIC PRODUCTS) [Concomitant]

REACTIONS (13)
  - ABDOMINAL PAIN [None]
  - ACUTE PRERENAL FAILURE [None]
  - APHAGIA [None]
  - BLOOD CHLORIDE DECREASED [None]
  - BLOOD PRESSURE SYSTOLIC INCREASED [None]
  - BLOOD SODIUM DECREASED [None]
  - DEHYDRATION [None]
  - HAEMODIALYSIS [None]
  - HEPATIC FUNCTION ABNORMAL [None]
  - INTENTIONAL MISUSE [None]
  - RHABDOMYOLYSIS [None]
  - SUICIDE ATTEMPT [None]
  - VOMITING [None]
